FAERS Safety Report 5988356-X (Version None)
Quarter: 2008Q4

REPORT INFORMATION
  Report Type: 
  Country: None (occurrence: None)
  Receive Date: 20081204
  Receipt Date: 20081113
  Transmission Date: 20090506
  Serious: Yes (Hospitalization)
  Sender: FDA-Public Use
  Company Number: 8036257

PATIENT
  Age: 70 Year
  Sex: Female
  Weight: 65 kg

DRUGS (10)
  1. KEPPRA [Suspect]
     Indication: EPILEPSY
     Dosage: 500 MG 2/D
     Dates: start: 20080601, end: 20080701
  2. KEPPRA [Suspect]
     Indication: EPILEPSY
     Dosage: 750 MG
     Dates: start: 20080701
  3. VENLAFAXINE HCL [Concomitant]
  4. ALDACTONE [Concomitant]
  5. BISOPROLOL FUMARATE [Concomitant]
  6. RAMIPRIL [Concomitant]
  7. FELO-PUREN [Concomitant]
  8. SIMVASTATIN [Concomitant]
  9. FALITHROM [Concomitant]
  10. METFORMIN HCL [Concomitant]

REACTIONS (10)
  - APATHY [None]
  - DECREASED INTEREST [None]
  - DISORIENTATION [None]
  - DISTURBANCE IN ATTENTION [None]
  - EATING DISORDER [None]
  - EPILEPSY [None]
  - FATIGUE [None]
  - HALLUCINATION, VISUAL [None]
  - PSYCHOMOTOR RETARDATION [None]
  - SOMNOLENCE [None]
